FAERS Safety Report 20500173 (Version 1)
Quarter: 2022Q1

REPORT INFORMATION
  Report Type: Spontaneous
  Country: US (occurrence: None)
  Receive Date: 20220218
  Receipt Date: 20220218
  Transmission Date: 20220424
  Serious: Yes (Hospitalization, Disabling)
  Sender: FDA-Public Use
  Company Number: None

PATIENT
  Age: 11 Year
  Sex: Male

DRUGS (11)
  1. EPIDIOLEX [Suspect]
     Active Substance: CANNABIDIOL
     Indication: Lennox-Gastaut syndrome
     Dosage: 2ML BID ORAL?
     Route: 048
     Dates: start: 20211006
  2. CALCIUM CARBONATE [Concomitant]
     Active Substance: CALCIUM CARBONATE
  3. CLOBAZAM [Concomitant]
     Active Substance: CLOBAZAM
  4. DOCUSATE [Concomitant]
     Active Substance: DOCUSATE
  5. EMLA [Concomitant]
     Active Substance: LIDOCAINE\PRILOCAINE
  6. ERYTHROMYCIN [Concomitant]
     Active Substance: ERYTHROMYCIN
  7. IBUPROFEN [Concomitant]
     Active Substance: IBUPROFEN
  8. PROBIOTICS NOS [Concomitant]
     Active Substance: PROBIOTICS NOS
  9. LEVETIRACETAM [Concomitant]
     Active Substance: LEVETIRACETAM
  10. SODIUM CHLORIDE [Concomitant]
     Active Substance: SODIUM CHLORIDE
  11. VITAMIN D [Concomitant]
     Active Substance: VITAMIN D NOS

REACTIONS (2)
  - Pneumonia aspiration [None]
  - Gastroenteritis viral [None]

NARRATIVE: CASE EVENT DATE: 20220202
